FAERS Safety Report 6814637-3 (Version None)
Quarter: 2010Q3

REPORT INFORMATION
  Report Type: 
  Country: None (occurrence: None)
  Receive Date: 20100702
  Receipt Date: 20100623
  Transmission Date: 20110219
  Serious: Yes (Other)
  Sender: FDA-Public Use
  Company Number: GB-PFIZER INC-2010078345

PATIENT
  Sex: Female

DRUGS (2)
  1. SUTENT [Suspect]
     Dosage: UNK
  2. AMITRIPTYLINE [Concomitant]
     Indication: DEPRESSION

REACTIONS (1)
  - ACUTE PSYCHOSIS [None]
